FAERS Safety Report 8199306-2 (Version None)
Quarter: 2012Q1

REPORT INFORMATION
  Report Type: 
  Country: None (occurrence: None)
  Receive Date: 20120309
  Receipt Date: 20120306
  Transmission Date: 20120608
  Serious: Yes (Other)
  Sender: FDA-Public Use
  Company Number: US-PFIZER INC-2012018455

PATIENT
  Sex: Female
  Weight: 59.41 kg

DRUGS (6)
  1. GEODON [Suspect]
     Indication: BIPOLAR DISORDER
     Dosage: 40 MG, DAILY
     Dates: start: 20060101
  2. ASCORBIC ACID [Concomitant]
     Dosage: UNK
  3. DEPAKOTE [Concomitant]
     Indication: AFFECTIVE DISORDER
  4. POTASSIUM [Concomitant]
     Dosage: UNK
  5. DEPAKOTE [Concomitant]
     Indication: MIGRAINE
     Dosage: 500 MG, DAILY
     Dates: start: 20010101
  6. DEPAKOTE [Concomitant]
     Indication: BIPOLAR DISORDER

REACTIONS (6)
  - THROAT IRRITATION [None]
  - TINNITUS [None]
  - DYSPHAGIA [None]
  - HYPERHIDROSIS [None]
  - CHOKING [None]
  - COUGH [None]
